FAERS Safety Report 9783978 (Version 1)
Quarter: 2013Q4

REPORT INFORMATION
  Report Type: Spontaneous
  Country: US (occurrence: US)
  Receive Date: 20131226
  Receipt Date: 20131226
  Transmission Date: 20140711
  Serious: No
  Sender: FDA-Public Use
  Company Number: US-PFIZER INC-2013364006

PATIENT
  Age: 51 Year
  Sex: Female
  Weight: 81.63 kg

DRUGS (3)
  1. ADVIL [Suspect]
     Indication: COELIAC DISEASE
     Dosage: UNK, TWO TIMES A MONTH
     Route: 048
     Dates: start: 2010, end: 20131217
  2. ADVIL [Suspect]
     Indication: MYALGIA
  3. ADVIL [Suspect]
     Indication: PAIN

REACTIONS (5)
  - Fatigue [Unknown]
  - Abdominal discomfort [Unknown]
  - Vomiting [Unknown]
  - Diarrhoea [Unknown]
  - Asthenia [Unknown]
